FAERS Safety Report 21878386 (Version 2)
Quarter: 2023Q1

REPORT INFORMATION
  Report Type: Report from Study
  Country: US (occurrence: US)
  Receive Date: 20230118
  Receipt Date: 20230208
  Transmission Date: 20230417
  Serious: Yes (Other)
  Sender: FDA-Public Use
  Company Number: US-ABBVIE-4270928

PATIENT
  Sex: Female

DRUGS (1)
  1. HUMIRA [Suspect]
     Active Substance: ADALIMUMAB
     Indication: Psoriasis
     Route: 058
     Dates: start: 20220321

REACTIONS (5)
  - Haemorrhoids [Recovering/Resolving]
  - Psoriatic arthropathy [Recovering/Resolving]
  - COVID-19 [Unknown]
  - Trigger finger [Recovering/Resolving]
  - Influenza [Unknown]
